FAERS Safety Report 17961997 (Version 1)
Quarter: 2020Q2

REPORT INFORMATION
  Report Type: Spontaneous
  Country: US (occurrence: US)
  Receive Date: 20200629
  Receipt Date: 20200629
  Transmission Date: 20200714
  Serious: Yes (Death)
  Sender: FDA-Public Use
  Company Number: None

PATIENT
  Age: 76 Year
  Sex: Female

DRUGS (8)
  1. TRIAMTERENE TABS [Concomitant]
  2. METOPROLOL ER TABS [Concomitant]
  3. MIRTAZAPINE TABLETS [Concomitant]
     Active Substance: MIRTAZAPINE
  4. PREDNISONE TABLETS [Concomitant]
     Active Substance: PREDNISONE
  5. TACROLIMUS 0.5MG CAPSULE [Suspect]
     Active Substance: TACROLIMUS
     Indication: LIVER TRANSPLANT
     Route: 048
  6. LEVOTHYROXINE TAB [Concomitant]
     Active Substance: LEVOTHYROXINE
  7. SULFAMETH/TRIMETHOPRIM TB [Concomitant]
  8. TACROLIMUS CAPSULES [Concomitant]
     Active Substance: TACROLIMUS

REACTIONS (1)
  - Death [None]

NARRATIVE: CASE EVENT DATE: 20200620
